FAERS Safety Report 15636971 (Version 1)
Quarter: 2018Q4

REPORT INFORMATION
  Report Type: Spontaneous
  Country: US (occurrence: US)
  Receive Date: 20181120
  Receipt Date: 20181120
  Transmission Date: 20190205
  Serious: No
  Sender: FDA-Public Use
  Company Number: US-SA-2018SA317033

PATIENT
  Age: 44 Year
  Sex: Female
  Weight: 63 kg

DRUGS (1)
  1. FABRAZYME [Suspect]
     Active Substance: AGALSIDASE BETA
     Dosage: 60 MG, QOW
     Route: 041
     Dates: start: 201804

REACTIONS (8)
  - Cough [Unknown]
  - Sputum discoloured [Unknown]
  - Malaise [Unknown]
  - Oropharyngeal pain [Unknown]
  - Headache [Unknown]
  - Dysphonia [Unknown]
  - Condition aggravated [Unknown]
  - Cardiac disorder [Unknown]

NARRATIVE: CASE EVENT DATE: 201811
